FAERS Safety Report 25482839 (Version 1)
Quarter: 2025Q2

REPORT INFORMATION
  Report Type: Spontaneous
  Country: US (occurrence: None)
  Receive Date: 20250625
  Receipt Date: 20250625
  Transmission Date: 20250716
  Serious: Yes (Hospitalization)
  Sender: FDA-CTU
  Company Number: None

PATIENT
  Sex: Female
  Weight: 65.77 kg

DRUGS (1)
  1. DUPIXENT [Suspect]
     Active Substance: DUPILUMAB
     Indication: Neurodermatitis
     Dosage: FREQUENCY : WEEKLY;?
     Route: 058
     Dates: start: 20250203, end: 20250605

REACTIONS (4)
  - Eye swelling [None]
  - Pharyngeal swelling [None]
  - Vertigo [None]
  - Therapy interrupted [None]
